FAERS Safety Report 4286268-3 (Version None)
Quarter: 2004Q1

REPORT INFORMATION
  Report Type: 
  Country: None (occurrence: None)
  Receive Date: 20040205
  Receipt Date: 20040205
  Transmission Date: 20041129
  Serious: Yes (Hospitalization)
  Sender: FDA-Public Use
  Company Number: None

PATIENT
  Age: 56 Year
  Sex: Female
  Weight: 89.3 kg

DRUGS (11)
  1. PHENYTOIN [Suspect]
     Indication: CEREBROVASCULAR ACCIDENT
     Dosage: 400 MG QHS
  2. PHENYTOIN [Suspect]
     Indication: CONVULSION
     Dosage: 400 MG QHS
  3. CLONIDINE HCL [Concomitant]
  4. CLOPIDOGREL BISULFATE [Concomitant]
  5. ESTROGEN [Concomitant]
  6. FOSINOPRIL SODIUM [Concomitant]
  7. FUROSEMIDE [Concomitant]
  8. NIFEDIPINE [Concomitant]
  9. KCL TAB [Concomitant]
  10. RANITIDINE [Concomitant]
  11. TOPIRMATE [Concomitant]

REACTIONS (3)
  - BALANCE DISORDER [None]
  - CONFUSIONAL STATE [None]
  - MEDICATION ERROR [None]
